FAERS Safety Report 15656678 (Version 1)
Quarter: 2018Q4

REPORT INFORMATION
  Report Type: Spontaneous
  Country: FR (occurrence: FR)
  Receive Date: 20181126
  Receipt Date: 20181126
  Transmission Date: 20190205
  Serious: Yes (Other)
  Sender: FDA-Public Use
  Company Number: FR-TEVA-2018-FR-978411

PATIENT
  Age: 65 Year
  Sex: Male

DRUGS (6)
  1. FLUOXETINE [Suspect]
     Active Substance: FLUOXETINE HYDROCHLORIDE
     Indication: PRODUCT USED FOR UNKNOWN INDICATION
     Dosage: NOT INFORMED
     Route: 048
     Dates: start: 20181011
  2. ACUPAN [Suspect]
     Active Substance: NEFOPAM HYDROCHLORIDE
     Indication: PAIN
     Dosage: NOT INFORMED
     Route: 042
     Dates: start: 20181023
  3. ZOLPIDEM [Suspect]
     Active Substance: ZOLPIDEM\ZOLPIDEM TARTRATE
     Indication: INSOMNIA
     Dosage: NOT INFORMED
     Route: 048
     Dates: start: 20180927
  4. DITROPAN [Suspect]
     Active Substance: OXYBUTYNIN CHLORIDE
     Indication: PRODUCT USED FOR UNKNOWN INDICATION
     Dosage: NOT INFORMED
     Route: 048
     Dates: start: 20181017
  5. MORPHINE [Suspect]
     Active Substance: MORPHINE
     Indication: PAIN
     Dosage: NOT INFORMED
     Route: 042
     Dates: start: 20181025
  6. SERESTA [Suspect]
     Active Substance: OXAZEPAM
     Indication: ANXIETY
     Dosage: NOT INFORMED
     Route: 048
     Dates: start: 20181011

REACTIONS (3)
  - Urinary retention [Not Recovered/Not Resolved]
  - Confusional state [Not Recovered/Not Resolved]
  - Somnolence [Not Recovered/Not Resolved]

NARRATIVE: CASE EVENT DATE: 20181025
